FAERS Safety Report 6911993-2 (Version None)
Quarter: 2010Q3

REPORT INFORMATION
  Report Type: 
  Country: None (occurrence: None)
  Receive Date: 20100806
  Receipt Date: 20080304
  Transmission Date: 20110219
  Serious: No
  Sender: FDA-Public Use
  Company Number: US-PFIZER INC-2006030310

PATIENT
  Sex: Female

DRUGS (3)
  1. DETROL LA [Suspect]
     Indication: HYPERTONIC BLADDER
  2. DITROPAN [Suspect]
     Route: 048
  3. METFORMIN HCL [Concomitant]

REACTIONS (7)
  - BACK PAIN [None]
  - BLOOD CHOLESTEROL [None]
  - CHOKING [None]
  - DRUG INEFFECTIVE [None]
  - DRY MOUTH [None]
  - EXOSTOSIS [None]
  - SLEEP DISORDER [None]
